FAERS Safety Report 6575901-9 (Version None)
Quarter: 2010Q1

REPORT INFORMATION
  Report Type: 
  Country: None (occurrence: None)
  Receive Date: 20100209
  Receipt Date: 20100201
  Transmission Date: 20100710
  Serious: Yes (Hospitalization)
  Sender: FDA-Public Use
  Company Number: DE-WYE-H13352210

PATIENT
  Age: 80 Year
  Sex: Female

DRUGS (10)
  1. PANTOPRAZOLE [Interacting]
     Indication: PROPHYLAXIS AGAINST GASTROINTESTINAL ULCER
     Route: 048
     Dates: start: 20080823
  2. METRONIDAZOLE [Interacting]
     Indication: PNEUMONIA
     Route: 042
     Dates: start: 20080826, end: 20080903
  3. MESALAZINE [Concomitant]
     Indication: COLITIS ULCERATIVE
     Route: 048
     Dates: start: 20080824
  4. ACETYLSALICYLIC ACID [Concomitant]
     Indication: ISCHAEMIC HEART DISEASE PROPHYLAXIS
     Dosage: UNKNOWN
     Route: 048
  5. REMINYL [Concomitant]
     Indication: DEMENTIA
     Route: 048
     Dates: start: 20070101
  6. NOVONORM [Concomitant]
     Indication: TYPE 2 DIABETES MELLITUS
     Route: 048
     Dates: start: 20070101
  7. RAMIPRIL [Concomitant]
     Indication: HYPERTENSION
     Route: 048
     Dates: start: 19900101
  8. PREDNISOLON [Interacting]
     Indication: COLITIS ULCERATIVE
     Route: 048
     Dates: start: 20080824
  9. ROCEPHIN [Suspect]
     Indication: PNEUMONIA
     Route: 042
     Dates: start: 20080826, end: 20080903
  10. THIAMAZOLE [Concomitant]
     Indication: HYPERTHYROIDISM
     Route: 048
     Dates: start: 20080824

REACTIONS (2)
  - CLOSTRIDIUM DIFFICILE COLITIS [None]
  - DRUG INTERACTION [None]
